FAERS Safety Report 6344431-1 (Version None)
Quarter: 2009Q3

REPORT INFORMATION
  Report Type: 
  Country: None (occurrence: None)
  Receive Date: 20090908
  Receipt Date: 20090831
  Transmission Date: 20100115
  Serious: Yes (Disabling, Other)
  Sender: FDA-Public Use
  Company Number: PHHY2009NZ36684

PATIENT
  Sex: Male
  Weight: 120 kg

DRUGS (3)
  1. CLOZARIL [Suspect]
     Indication: PSYCHOTIC DISORDER
     Dosage: 300 MG NOCTA
     Route: 048
     Dates: start: 20090605
  2. CITALOPRAM HYDROBROMIDE [Concomitant]
     Indication: DEPRESSION
     Dosage: 5 MG MANE
     Route: 048
  3. ARIPIPRAZOLE [Concomitant]
     Indication: PSYCHOTIC DISORDER
     Dosage: 5 MG MANE
     Route: 048

REACTIONS (6)
  - ANTIPSYCHOTIC DRUG LEVEL BELOW THERAPEUTIC [None]
  - APATHY [None]
  - DISTURBANCE IN ATTENTION [None]
  - SEDATION [None]
  - URINARY INCONTINENCE [None]
  - WEIGHT INCREASED [None]
